FAERS Safety Report 8203584-0 (Version None)
Quarter: 2012Q1

REPORT INFORMATION
  Report Type: 
  Country: None (occurrence: None)
  Receive Date: 20120313
  Receipt Date: 20120308
  Transmission Date: 20120608
  Serious: No
  Sender: FDA-Public Use
  Company Number: US-BIOGENIDEC-2012BI008466

PATIENT
  Age: 41 Year
  Sex: Female

DRUGS (3)
  1. TYSABRI [Suspect]
     Indication: MULTIPLE SCLEROSIS
     Route: 042
     Dates: start: 20080201, end: 20100119
  2. TYSABRI [Suspect]
     Route: 042
     Dates: start: 20101022
  3. AVONEX [Concomitant]
     Indication: MULTIPLE SCLEROSIS
     Route: 030
     Dates: start: 19990601

REACTIONS (5)
  - NASOPHARYNGITIS [None]
  - BRONCHITIS [None]
  - HYPERSENSITIVITY [None]
  - KIDNEY INFECTION [None]
  - CYSTITIS [None]
